FAERS Safety Report 5969777-8 (Version None)
Quarter: 2008Q4

REPORT INFORMATION
  Report Type: 
  Country: None (occurrence: None)
  Receive Date: 20081126
  Receipt Date: 20081118
  Transmission Date: 20090506
  Serious: Yes (Hospitalization)
  Sender: FDA-Public Use
  Company Number: JP-ABBOTT-07P-087-0356596-00

PATIENT
  Sex: Female

DRUGS (7)
  1. LEUPROLIDE ACETATE [Suspect]
     Indication: BREAST CANCER
     Route: 058
     Dates: start: 20060915, end: 20061214
  2. LEUPROLIDE ACETATE [Suspect]
     Indication: MENOPAUSE
  3. TAMOXIFEN CITRATE [Suspect]
     Indication: MENOPAUSE
     Route: 048
     Dates: start: 20060915, end: 20070114
  4. TAMOXIFEN CITRATE [Suspect]
     Indication: BREAST CANCER
  5. RADIATION THERAPY [Concomitant]
     Indication: BREAST CANCER
     Dates: start: 20060912, end: 20061025
  6. RADIATION THERAPY [Concomitant]
     Indication: MENOPAUSE
  7. ALENDRONATE SODIUM [Concomitant]
     Indication: OSTEOPOROSIS PROPHYLAXIS
     Dates: start: 20070328

REACTIONS (6)
  - BACK PAIN [None]
  - INTERSTITIAL LUNG DISEASE [None]
  - MUSCULOSKELETAL PAIN [None]
  - MUSCULOSKELETAL STIFFNESS [None]
  - MYALGIA [None]
  - RADIATION SKIN INJURY [None]
